FAERS Safety Report 5813770-2 (Version None)
Quarter: 2008Q3

REPORT INFORMATION
  Report Type: 
  Country: None (occurrence: None)
  Receive Date: 20080717
  Receipt Date: 20080708
  Transmission Date: 20090109
  Serious: Yes (Other)
  Sender: FDA-Public Use
  Company Number: PHHY2008BR13289

PATIENT
  Sex: Male
  Weight: 76 kg

DRUGS (3)
  1. RITALIN [Suspect]
     Indication: DISTURBANCE IN ATTENTION
     Dosage: 10 MG, BID
     Route: 048
     Dates: end: 20080704
  2. RITALIN [Suspect]
     Dosage: UNK
     Dates: start: 20080706
  3. LOSARTAN POTASSIUM [Concomitant]
     Indication: BLOOD PRESSURE INCREASED
     Dosage: UNK
     Dates: end: 20080501

REACTIONS (2)
  - RENAL STONE REMOVAL [None]
  - SOMNOLENCE [None]
